FAERS Safety Report 15727232 (Version 1)
Quarter: 2018Q4

REPORT INFORMATION
  Report Type: Report from Study
  Country: AT (occurrence: AT)
  Receive Date: 20181217
  Receipt Date: 20181217
  Transmission Date: 20190205
  Serious: Yes (Other)
  Sender: FDA-Public Use
  Company Number: AT-TEVA-2018-AT-986984

PATIENT
  Age: 84 Year
  Sex: Female

DRUGS (4)
  1. PACLITAXEL. [Suspect]
     Active Substance: PACLITAXEL
     Indication: GASTRIC CANCER
     Route: 042
     Dates: start: 20170530
  2. CYRAMZA [Suspect]
     Active Substance: RAMUCIRUMAB
     Indication: GASTRIC CANCER
     Route: 042
     Dates: start: 20170712, end: 20171010
  3. PACLITAXEL. [Suspect]
     Active Substance: PACLITAXEL
     Route: 042
     Dates: start: 20170726
  4. CYRAMZA [Suspect]
     Active Substance: RAMUCIRUMAB
     Route: 042
     Dates: start: 20170726

REACTIONS (3)
  - Polyneuropathy [Recovered/Resolved]
  - Non-cardiac chest pain [Recovered/Resolved]
  - Vomiting [Recovered/Resolved]

NARRATIVE: CASE EVENT DATE: 20170712
